FAERS Safety Report 7644475 (Version 3)
Quarter: 2016Q1

REPORT INFORMATION
  Report Type: Spontaneous
  Country: JP (occurrence: JP)
  Receive Date: 20101028
  Receipt Date: 20160210
  Transmission Date: 20160526
  Serious: Yes (Other)
  Sender: FDA-Public Use
  Company Number: JP-BRISTOL-MYERS SQUIBB COMPANY-15252737

PATIENT
  Age: 27 Year
  Sex: Female
  Weight: 51 kg

DRUGS (2)
  1. KENACORT [Suspect]
     Active Substance: TRIAMCINOLONE
     Indication: VOGT-KOYANAGI-HARADA SYNDROME
     Dosage: SUB-TENON;1DF-40MG FOR RIGHT AND 40MG FOR LEFT;20OCT-05NOV2009
     Route: 065
     Dates: start: 20091020, end: 20091105
  2. BETAMETHASONE. [Suspect]
     Active Substance: BETAMETHASONE
     Indication: PRODUCT USED FOR UNKNOWN INDICATION
     Route: 065

REACTIONS (7)
  - Haemorrhagic anaemia [Unknown]
  - Intraocular pressure increased [Recovered/Resolved]
  - Maternal exposure during pregnancy [Recovered/Resolved]
  - Induced labour [None]
  - Disseminated intravascular coagulation [Unknown]
  - Shock haemorrhagic [Unknown]
  - Live birth [Unknown]

NARRATIVE: CASE EVENT DATE: 20100321
